FAERS Safety Report 13445422 (Version 2)
Quarter: 2017Q2

REPORT INFORMATION
  Report Type: Spontaneous
  Country: CN (occurrence: CN)
  Receive Date: 20170415
  Receipt Date: 20170630
  Transmission Date: 20170830
  Serious: Yes (Other)
  Sender: FDA-Public Use
  Company Number: CN-SUN PHARMACEUTICAL INDUSTRIES LTD-2017R1-138416

PATIENT
  Age: 16 Year
  Sex: Male

DRUGS (3)
  1. DOXORUBICIN [Suspect]
     Active Substance: DOXORUBICIN
     Indication: DESMOID TUMOUR
     Dosage: UNK (20 MG/M2 DAILY), CYCLIC
     Route: 041
  2. MELOXICAM. [Suspect]
     Active Substance: MELOXICAM
     Indication: DESMOID TUMOUR
     Dosage: UNK (10 MG/M2) CYCLIC
     Route: 065
     Dates: start: 20140524
  3. DACARBAZINE. [Suspect]
     Active Substance: DACARBAZINE
     Indication: DESMOID TUMOUR
     Dosage: UNK CYCLIC
     Route: 041

REACTIONS (1)
  - Intestinal perforation [Recovering/Resolving]
